FAERS Safety Report 21151829 (Version 3)
Quarter: 2022Q4

REPORT INFORMATION
  Report Type: Spontaneous
  Country: US (occurrence: US)
  Receive Date: 20220730
  Receipt Date: 20221123
  Transmission Date: 20230113
  Serious: No
  Sender: FDA-Public Use
  Company Number: US-BRISTOL-MYERS SQUIBB COMPANY-2022-081370

PATIENT
  Age: 65 Year
  Sex: Male

DRUGS (4)
  1. REVLIMID [Suspect]
     Active Substance: LENALIDOMIDE
     Indication: Product used for unknown indication
     Route: 048
     Dates: start: 202111
  2. REVLIMID [Suspect]
     Active Substance: LENALIDOMIDE
     Dosage: FREQUENCY: OTHER
     Route: 048
  3. ZOMETA [Concomitant]
     Active Substance: ZOLEDRONIC ACID
     Route: 065
  4. VELCADE [Concomitant]
     Active Substance: BORTEZOMIB
     Route: 065

REACTIONS (10)
  - Feeling abnormal [Unknown]
  - Dysarthria [Unknown]
  - Dizziness [Unknown]
  - Paraesthesia [Unknown]
  - Nausea [Unknown]
  - Dyspnoea [Unknown]
  - Heart rate decreased [Unknown]
  - Hypotension [Unknown]
  - Laboratory test abnormal [Unknown]
  - Chest discomfort [Unknown]

NARRATIVE: CASE EVENT DATE: 20220530
